FAERS Safety Report 17097700 (Version 2)
Quarter: 2019Q4

REPORT INFORMATION
  Report Type: Spontaneous
  Country: CN (occurrence: CN)
  Receive Date: 20191202
  Receipt Date: 20191202
  Transmission Date: 20200122
  Serious: Yes (Hospitalization)
  Sender: FDA-Public Use
  Company Number: CN-CELGENEUS-CHN-20191105968

PATIENT
  Age: 67 Year
  Sex: Female
  Weight: 44 kg

DRUGS (4)
  1. G-CSF [Concomitant]
     Active Substance: GRANULOCYTE COLONY-STIMULATING FACTOR NOS
     Indication: PRODUCT USED FOR UNKNOWN INDICATION
     Route: 058
  2. ABRAXANE [Suspect]
     Active Substance: PACLITAXEL
     Route: 041
     Dates: start: 20190723, end: 20190723
  3. CISPLATIN. [Concomitant]
     Active Substance: CISPLATIN
     Indication: PRODUCT USED FOR UNKNOWN INDICATION
     Route: 040
     Dates: start: 20190723, end: 20190723
  4. ABRAXANE [Suspect]
     Active Substance: PACLITAXEL
     Indication: OVARIAN EPITHELIAL CANCER
     Route: 041
     Dates: start: 20190724

REACTIONS (1)
  - Bone marrow failure [Recovered/Resolved]

NARRATIVE: CASE EVENT DATE: 20190729
